FAERS Safety Report 8416581-7 (Version None)
Quarter: 2012Q2

REPORT INFORMATION
  Report Type: 
  Country: None (occurrence: None)
  Receive Date: 20120606
  Receipt Date: 20120527
  Transmission Date: 20120825
  Serious: Yes (Hospitalization, Other)
  Sender: FDA-Public Use
  Company Number: US-ABBOTT-12P-163-0940398-00

PATIENT
  Sex: Female

DRUGS (14)
  1. DEXILANT [Concomitant]
     Indication: GASTROOESOPHAGEAL REFLUX DISEASE
     Dosage: DAILY
  2. VFL #3 [Concomitant]
     Indication: IRRITABLE BOWEL SYNDROME
  3. SEROQUEL [Concomitant]
     Indication: PRODUCT USED FOR UNKNOWN INDICATION
     Dosage: 400MG QPM
  4. VFL #3 [Concomitant]
     Indication: CROHN'S DISEASE
     Dosage: #3 PACKET
  5. HUMIRA [Suspect]
     Indication: CROHN'S DISEASE
     Dates: start: 20090301
  6. CANASA [Concomitant]
     Indication: PRODUCT USED FOR UNKNOWN INDICATION
     Dosage: 1000 MG QPM
     Route: 054
  7. HUMIRA [Suspect]
     Dates: start: 20100501
  8. KLONOPIN [Concomitant]
     Indication: ANXIETY
     Dosage: 2.5MG QPM
  9. PENTASA [Concomitant]
     Indication: CROHN'S DISEASE
  10. KLONOPIN [Concomitant]
     Indication: BIPOLAR DISORDER
     Dosage: PRN
  11. MIRAPEX [Concomitant]
     Indication: PERIODIC LIMB MOVEMENT DISORDER
     Dosage: 0.125, 3 TABLETS EVERY EVENING
  12. FLEXERIL [Concomitant]
     Indication: PRODUCT USED FOR UNKNOWN INDICATION
     Dosage: 5-10 MG PRN
  13. VYVANSE [Concomitant]
     Indication: ATTENTION DEFICIT/HYPERACTIVITY DISORDER
  14. STOOL SOFTENER [Concomitant]
     Indication: PRODUCT USED FOR UNKNOWN INDICATION

REACTIONS (10)
  - COMPARTMENT SYNDROME [None]
  - RECTAL ULCER [None]
  - TENDONITIS [None]
  - PERONEAL NERVE PALSY [None]
  - DEHYDRATION [None]
  - INCORRECT DOSE ADMINISTERED [None]
  - MALAISE [None]
  - ABDOMINAL PAIN UPPER [None]
  - NAUSEA [None]
  - WRONG TECHNIQUE IN DRUG USAGE PROCESS [None]
